FAERS Safety Report 17670812 (Version 1)
Quarter: 2020Q2

REPORT INFORMATION
  Report Type: Spontaneous
  Country: US (occurrence: US)
  Receive Date: 20200414
  Receipt Date: 20200414
  Transmission Date: 20200713
  Serious: No
  Sender: FDA-Public Use
  Company Number: None

PATIENT
  Age: 53 Year
  Sex: Female

DRUGS (1)
  1. TALTZ [Suspect]
     Active Substance: IXEKIZUMAB
     Route: 058
     Dates: start: 20200311

REACTIONS (3)
  - Injection site mass [None]
  - Injection site erythema [None]
  - Injection site warmth [None]

NARRATIVE: CASE EVENT DATE: 20200402
